FAERS Safety Report 7383856-2 (Version None)
Quarter: 2011Q1

REPORT INFORMATION
  Report Type: 
  Country: None (occurrence: None)
  Receive Date: 20110330
  Receipt Date: 20110318
  Transmission Date: 20110831
  Serious: Yes (Other)
  Sender: FDA-Public Use
  Company Number: CN-BAYER-2011-024341

PATIENT
  Age: 72 Year
  Sex: Male

DRUGS (2)
  1. AVELOX [Suspect]
     Indication: PNEUMONIA
     Dosage: 0.4 G, QD
     Route: 041
     Dates: start: 20080531, end: 20080531
  2. AMOXICILLIN + CLAVULANATE POTASSIUM [Concomitant]
     Indication: LUNG INFECTION

REACTIONS (6)
  - ELECTROCARDIOGRAM QT PROLONGED [None]
  - GAIT DISTURBANCE [None]
  - DEPRESSED LEVEL OF CONSCIOUSNESS [None]
  - SPEECH DISORDER [None]
  - DYSPNOEA [None]
  - CHEST DISCOMFORT [None]
